FAERS Safety Report 11616559 (Version 5)
Quarter: 2016Q2

REPORT INFORMATION
  Report Type: Spontaneous
  Country: US (occurrence: US)
  Receive Date: 20151009
  Receipt Date: 20160527
  Transmission Date: 20160815
  Serious: Yes (Other)
  Sender: FDA-Public Use
  Company Number: US-MDT-ADR-2015-01932

PATIENT
  Age: 54 Year
  Sex: Female

DRUGS (5)
  1. LIORESAL [Suspect]
     Active Substance: BACLOFEN
     Route: 037
     Dates: start: 20150811, end: 20151002
  2. AMPYRA [Suspect]
     Active Substance: DALFAMPRIDINE
  3. BACLOFEN. [Suspect]
     Active Substance: BACLOFEN
     Route: 037
     Dates: start: 20151002
  4. LISINOPRIL. [Suspect]
     Active Substance: LISINOPRIL
  5. BACLOFEN. [Suspect]
     Active Substance: BACLOFEN
     Route: 048

REACTIONS (1)
  - Muscle twitching [Recovered/Resolved]
